FAERS Safety Report 8129117-5 (Version None)
Quarter: 2012Q1

REPORT INFORMATION
  Report Type: 
  Country: None (occurrence: None)
  Receive Date: 20120210
  Receipt Date: 20120207
  Transmission Date: 20120608
  Serious: Yes (Hospitalization, Other)
  Sender: FDA-Public Use
  Company Number: US-PFIZER INC-2012034380

PATIENT
  Sex: Female
  Weight: 109 kg

DRUGS (5)
  1. LYRICA [Suspect]
     Indication: HEADACHE
     Dosage: 75 MG, 3X/DAY
     Route: 048
  2. NEURONTIN [Suspect]
     Indication: HEADACHE
  3. LYRICA [Suspect]
     Dosage: 150 MG, 3X/DAY
     Route: 048
     Dates: end: 20120101
  4. LYRICA [Suspect]
     Indication: NERVE INJURY
     Dosage: 50 MG, 3X/DAY
     Route: 048
     Dates: start: 20090101
  5. NEURONTIN [Suspect]
     Indication: NERVE INJURY
     Dosage: 300 MG, 3X/DAY
     Dates: start: 20120101

REACTIONS (11)
  - DRUG INEFFECTIVE [None]
  - ANKLE FRACTURE [None]
  - STAPHYLOCOCCAL INFECTION [None]
  - NERVE INJURY [None]
  - PARAESTHESIA [None]
  - LIMB INJURY [None]
  - BEDRIDDEN [None]
  - ROAD TRAFFIC ACCIDENT [None]
  - ABSCESS [None]
  - SURGERY [None]
  - MULTIPLE FRACTURES [None]
